FAERS Safety Report 14710325 (Version 1)
Quarter: 2018Q2

REPORT INFORMATION
  Report Type: Spontaneous
  Country: US (occurrence: US)
  Receive Date: 20180403
  Receipt Date: 20180403
  Transmission Date: 20180711
  Serious: No
  Sender: FDA-Public Use
  Company Number: US-BAUSCH-BL-2018-003739

PATIENT
  Sex: Female

DRUGS (2)
  1. FLUNISOLIDE NASAL SOLUTION USP 0.025% [Suspect]
     Active Substance: FLUNISOLIDE
     Indication: NASOPHARYNGITIS
     Dosage: 2 SPRAYS A DAY IN HER NOSTRILS EVERY 12 HOURS
     Route: 045
     Dates: start: 20180203
  2. FLUNISOLIDE NASAL SOLUTION USP 0.025% [Suspect]
     Active Substance: FLUNISOLIDE
     Indication: DEAFNESS

REACTIONS (3)
  - Drug ineffective for unapproved indication [Unknown]
  - Malaise [Unknown]
  - Off label use [Unknown]
